FAERS Safety Report 5818436-0 (Version None)
Quarter: 2008Q3

REPORT INFORMATION
  Report Type: 
  Country: None (occurrence: None)
  Receive Date: 20080716
  Receipt Date: 20080630
  Transmission Date: 20090109
  Serious: Yes (Other)
  Sender: FDA-Public Use
  Company Number: 8033836

PATIENT
  Age: 17 Year
  Sex: Female
  Weight: 62 kg

DRUGS (4)
  1. KEPPRA [Suspect]
     Indication: EPILEPSY
     Dosage: 1000 MG 2/D;
  2. KEPPRA [Suspect]
     Indication: EPILEPSY
     Dosage: 1000 MG /D;
  3. VALPROATE SODIUM [Concomitant]
  4. LAMOTRIGINE [Concomitant]

REACTIONS (3)
  - DRUG HYPERSENSITIVITY [None]
  - EXPOSURE TO COMMUNICABLE DISEASE [None]
  - RASH [None]
